FAERS Safety Report 5595268-2 (Version None)
Quarter: 2008Q1

REPORT INFORMATION
  Report Type: 
  Country: None (occurrence: None)
  Receive Date: 20080117
  Receipt Date: 20080109
  Transmission Date: 20080703
  Serious: Yes (Death)
  Sender: FDA-Public Use
  Company Number: US-PFIZER INC-2008003583

PATIENT
  Age: 50 Year
  Sex: Female

DRUGS (8)
  1. QUINAPRIL HCL [Suspect]
     Route: 048
  2. PREGABALIN [Suspect]
  3. MORPHINE [Suspect]
  4. BENZODIAZEPINE DERIVATIVES [Suspect]
  5. THYROID TAB [Suspect]
  6. FUROSEMIDE [Suspect]
  7. PRAVASTATIN [Suspect]
  8. BACLOFEN [Suspect]

REACTIONS (1)
  - DEATH [None]
